FAERS Safety Report 8708357 (Version 9)
Quarter: 2013Q3

REPORT INFORMATION
  Report Type: Report from Study
  Country: US (occurrence: US)
  Receive Date: 20120806
  Receipt Date: 20130814
  Transmission Date: 20140515
  Serious: Yes (Death, Life-Threatening, Hospitalization, Other)
  Sender: FDA-Public Use
  Company Number: US-SANOFI-AVENTIS-2012SA054073

PATIENT
  Age: 60 Year
  Sex: Male
  Weight: 68.8 kg

DRUGS (8)
  1. CABAZITAXEL [Suspect]
     Indication: COLON CANCER
     Route: 042
     Dates: start: 20120718, end: 20120718
  2. MEGACE [Concomitant]
     Route: 048
  3. MILK OF MAGNESIA [Concomitant]
     Dosage: DOSE:1 TEASPOON(S)
     Route: 048
  4. VICODIN [Concomitant]
     Route: 048
     Dates: start: 20120713
  5. MAGNESIUM [Concomitant]
     Route: 048
     Dates: start: 20120713, end: 20120727
  6. NORMAL SALINE [Concomitant]
     Route: 041
     Dates: start: 20120725, end: 20120725
  7. CLOTRIMAZOLE [Concomitant]
     Dosage: DOSE:1 TEASPOON(S)
     Route: 065
     Dates: start: 20120725
  8. ALUMINUM HYDROXIDE\MAGNESIUM HYDROXIDE [Concomitant]
     Dosage: DOSE:1 TEASPOON(S)
     Route: 065
     Dates: start: 20120725

REACTIONS (6)
  - Tumour lysis syndrome [Fatal]
  - Acute respiratory failure [Fatal]
  - Septic shock [Fatal]
  - Urinary tract infection [Not Recovered/Not Resolved]
  - Dehydration [Not Recovered/Not Resolved]
  - Anaemia [Not Recovered/Not Resolved]
